FAERS Safety Report 14621416 (Version 2)
Quarter: 2018Q1

REPORT INFORMATION
  Report Type: Report from Study
  Country: None (occurrence: US)
  Receive Date: 20180310
  Receipt Date: 20180321
  Transmission Date: 20180509
  Serious: Yes (Other)
  Sender: FDA-Public Use
  Company Number: US-ABBVIE-18K-163-2282588-00

PATIENT
  Age: 21 Year
  Sex: Female
  Weight: 68.1 kg

DRUGS (3)
  1. BUDESONIDE. [Concomitant]
     Active Substance: BUDESONIDE
     Indication: ASTHMA
  2. AMOXICILLIN. [Concomitant]
     Active Substance: AMOXICILLIN
     Indication: ANTIBIOTIC THERAPY
  3. HUMIRA [Suspect]
     Active Substance: ADALIMUMAB
     Indication: CROHN^S DISEASE
     Route: 058
     Dates: start: 201701, end: 20180214

REACTIONS (2)
  - Chronic tonsillitis [Recovering/Resolving]
  - Procedural pain [Recovering/Resolving]

NARRATIVE: CASE EVENT DATE: 2017
